FAERS Safety Report 19448135 (Version 1)
Quarter: 2021Q2

REPORT INFORMATION
  Report Type: Spontaneous
  Country: US (occurrence: US)
  Receive Date: 20210622
  Receipt Date: 20210622
  Transmission Date: 20210717
  Serious: Yes (Hospitalization)
  Sender: FDA-Public Use
  Company Number: None

PATIENT
  Sex: Female
  Weight: 61.2 kg

DRUGS (4)
  1. 5?FLUOROURACIL [Suspect]
     Active Substance: FLUOROURACIL
  2. ELOXATIN [Concomitant]
     Active Substance: OXALIPLATIN
  3. CAMPTOSAR [Concomitant]
     Active Substance: IRINOTECAN HYDROCHLORIDE
  4. LEUCOVORIN CALCIUM. [Concomitant]
     Active Substance: LEUCOVORIN CALCIUM

REACTIONS (5)
  - Pneumobilia [None]
  - Bacterial sepsis [None]
  - Biliary tract infection bacterial [None]
  - Cholelithiasis [None]
  - Blood culture positive [None]

NARRATIVE: CASE EVENT DATE: 20210618
